FAERS Safety Report 8288951-1 (Version None)
Quarter: 2012Q2

REPORT INFORMATION
  Report Type: 
  Country: None (occurrence: None)
  Receive Date: 20120417
  Receipt Date: 20120410
  Transmission Date: 20120825
  Serious: Yes (Hospitalization)
  Sender: FDA-Public Use
  Company Number: US-BAYER-2011-123427

PATIENT
  Age: 33 Year
  Sex: Female
  Weight: 85 kg

DRUGS (10)
  1. PROMETHAZINE [Concomitant]
  2. YAZ [Suspect]
     Dosage: UNK
     Dates: start: 20080801, end: 20101125
  3. ACETAMINOPHEN AND HYDROCODONE BITARTRATE [Concomitant]
  4. CYMBALTA [Concomitant]
  5. THYROID TAB [Concomitant]
  6. LORAZEPAM [Concomitant]
  7. OMEPRAZOLE [Concomitant]
  8. APRISO [Concomitant]
  9. APRISO [Concomitant]
  10. DIPHENOXYLATE [Concomitant]

REACTIONS (7)
  - ABDOMINAL PAIN [None]
  - NAUSEA [None]
  - MENTAL DISORDER [None]
  - CHOLECYSTITIS ACUTE [None]
  - DIARRHOEA [None]
  - BILIARY COLIC [None]
  - PANCREATITIS [None]
